FAERS Safety Report 5584461-0 (Version None)
Quarter: 2008Q1

REPORT INFORMATION
  Report Type: 
  Country: None (occurrence: None)
  Receive Date: 20080108
  Receipt Date: 20071228
  Transmission Date: 20080703
  Serious: Yes (Other)
  Sender: FDA-Public Use
  Company Number: US-ELI_LILLY_AND_COMPANY-US200711005544

PATIENT
  Sex: Male

DRUGS (3)
  1. FORTEO [Suspect]
     Indication: PELVIC FRACTURE
     Dates: start: 20071001, end: 20071101
  2. LANOXIN [Concomitant]
     Dosage: UNK, UNK
     Dates: start: 19770101
  3. BETA BLOCKING AGENTS [Concomitant]
     Dates: end: 20071101

REACTIONS (3)
  - ATRIAL FIBRILLATION [None]
  - BRADYCARDIA [None]
  - HEART RATE IRREGULAR [None]
